FAERS Safety Report 13511941 (Version 1)
Quarter: 2017Q2

REPORT INFORMATION
  Report Type: Spontaneous
  Country: IE (occurrence: IE)
  Receive Date: 20170504
  Receipt Date: 20170504
  Transmission Date: 20170830
  Serious: Yes (Other)
  Sender: FDA-Public Use
  Company Number: IE-TEVA-763886ACC

PATIENT
  Sex: Male

DRUGS (15)
  1. NEXAZOLE [Concomitant]
     Dosage: 40 MILLIGRAM DAILY;
     Dates: start: 20121210
  2. RAMILO [Concomitant]
     Active Substance: RAMIPRIL
     Dosage: 1.25 MILLIGRAM DAILY;
     Dates: start: 20160620
  3. DELTACORTRIL ENTERIC [Concomitant]
     Dosage: 5 MILLIGRAM DAILY;
     Dates: start: 20161222
  4. CALCICHEW-D3 FORTE CHEWABLE TABLETS, CALCIUM CARBO TABLETS CHEWABLE 50 [Concomitant]
     Active Substance: CALCIUM\CHOLECALCIFEROL
     Dosage: 500MG/400 UNITS
     Dates: start: 20091111
  5. FRUSEMIDE [Concomitant]
     Active Substance: FUROSEMIDE
     Dosage: 20 MILLIGRAM DAILY;
     Dates: start: 20160905
  6. VENTOLIN [Concomitant]
     Active Substance: ALBUTEROL SULFATE
     Dosage: TWO PUFFS UP TO FOUR TIMES DAILY IF REQUIRED
     Route: 055
  7. IPRAMOL STERI-NEB VERNEVELOPL 0,2/1MG/ML FL2,5ML [Suspect]
     Active Substance: ALBUTEROL SULFATE\IPRATROPIUM BROMIDE
     Indication: BRONCHOSPASM
     Dosage: ONE NEBULE FOUR TIMES DAILY
     Route: 055
     Dates: start: 20170408
  8. PARALIEF 500MG TABLETS [Concomitant]
     Dosage: UP TO FOUR TIMES DAILY IF REQUIRED
     Route: 048
  9. COPAXONE [Concomitant]
     Active Substance: GLATIRAMER ACETATE
     Indication: MULTIPLE SCLEROSIS
  10. XANAX [Concomitant]
     Active Substance: ALPRAZOLAM
     Dosage: ONE DAILY IF REQUIRED
     Dates: start: 20160708
  11. IPRAMOL STERI-NEB VERNEVELOPL 0,2/1MG/ML FL2,5ML [Suspect]
     Active Substance: ALBUTEROL SULFATE\IPRATROPIUM BROMIDE
     Indication: CHRONIC OBSTRUCTIVE PULMONARY DISEASE
  12. MST CONTINUS [Concomitant]
     Active Substance: MORPHINE SULFATE
     Dosage: 10 MILLIGRAM DAILY;
     Dates: start: 20160905
  13. CLOPIDOGREL [Concomitant]
     Active Substance: CLOPIDOGREL BISULFATE
     Dosage: 75 MILLIGRAM DAILY;
     Dates: start: 20160905
  14. SERETIDE [Concomitant]
     Active Substance: FLUTICASONE PROPIONATE\SALMETEROL XINAFOATE
     Dosage: ONE PUFF TWICE DAILY
     Route: 055
     Dates: start: 20070109
  15. SPIRIVA [Concomitant]
     Active Substance: TIOTROPIUM BROMIDE MONOHYDRATE
     Dosage: ONCE DAILY
     Dates: start: 20070109

REACTIONS (2)
  - Dyspnoea [Recovered/Resolved]
  - Oxygen saturation decreased [Recovered/Resolved]

NARRATIVE: CASE EVENT DATE: 20170408
